FAERS Safety Report 14140346 (Version 1)
Quarter: 2017Q4

REPORT INFORMATION
  Report Type: Spontaneous
  Country: US (occurrence: US)
  Receive Date: 20171030
  Receipt Date: 20171030
  Transmission Date: 20180321
  Serious: No
  Sender: FDA-Public Use
  Company Number: US-TEVA-777918ACC

PATIENT

DRUGS (1)
  1. GUANFACINE HYDROCHLORIDE. [Suspect]
     Active Substance: GUANFACINE HYDROCHLORIDE
     Route: 065

REACTIONS (2)
  - Abdominal discomfort [Unknown]
  - Abdominal discomfort [Not Recovered/Not Resolved]
